FAERS Safety Report 6107254-4 (Version None)
Quarter: 2009Q1

REPORT INFORMATION
  Report Type: 
  Country: None (occurrence: None)
  Receive Date: 20090309
  Receipt Date: 20090304
  Transmission Date: 20090719
  Serious: Yes (Other)
  Sender: FDA-Public Use
  Company Number: DE-BRISTOL-MYERS SQUIBB COMPANY-14530851

PATIENT
  Sex: Male

DRUGS (2)
  1. VEPESID [Suspect]
     Indication: CHEMOTHERAPY
  2. CARBOPLATIN [Suspect]
     Indication: CHEMOTHERAPY

REACTIONS (1)
  - ARRHYTHMIA [None]
